FAERS Safety Report 5444843-4 (Version None)
Quarter: 2007Q3

REPORT INFORMATION
  Report Type: 
  Country: None (occurrence: None)
  Receive Date: 20070906
  Receipt Date: 20070402
  Transmission Date: 20080115
  Serious: No
  Sender: FDA-Public Use
  Company Number: A0645601A

PATIENT
  Sex: Male

DRUGS (4)
  1. REQUIP [Suspect]
     Indication: RESTLESS LEGS SYNDROME
     Dosage: .25MG PER DAY
     Route: 048
     Dates: start: 20070321
  2. GLIBURIDE [Concomitant]
  3. KERLONE [Concomitant]
  4. VITAMIN [Concomitant]

REACTIONS (1)
  - DRUG INEFFECTIVE [None]
